FAERS Safety Report 4428744-6 (Version None)
Quarter: 2004Q3

REPORT INFORMATION
  Report Type: 
  Country: None (occurrence: None)
  Receive Date: 20040818
  Receipt Date: 20040405
  Transmission Date: 20050211
  Serious: Yes (Life-Threatening, Hospitalization, Other)
  Sender: FDA-Public Use
  Company Number: US-BRISTOL-MYERS SQUIBB COMPANY-12550687

PATIENT
  Age: 42 Year
  Sex: Male
  Weight: 82 kg

DRUGS (1)
  1. TEQUIN [Suspect]
     Indication: PNEUMONIA
     Route: 048
     Dates: start: 20021201, end: 20021201

REACTIONS (2)
  - NEUROPATHY PERIPHERAL [None]
  - STEVENS-JOHNSON SYNDROME [None]
